FAERS Safety Report 5193428-6 (Version None)
Quarter: 2006Q4

REPORT INFORMATION
  Report Type: 
  Country: None (occurrence: None)
  Receive Date: 20061228
  Receipt Date: 20060419
  Transmission Date: 20070319
  Serious: No
  Sender: FDA-Public Use
  Company Number: US-GLAXOSMITHKLINE-A0602460A

PATIENT
  Sex: Female

DRUGS (6)
  1. FLONASE [Suspect]
     Indication: RHINITIS
     Route: 045
  2. TOPROL-XL [Concomitant]
  3. ERYCETTE [Concomitant]
  4. SYNTHROID [Concomitant]
  5. LISINOPRIL [Concomitant]
  6. DIPYRIDAMOLE [Concomitant]

REACTIONS (1)
  - EPISTAXIS [None]
